FAERS Safety Report 9504588 (Version 1)
Quarter: 2013Q3

REPORT INFORMATION
  Report Type: Spontaneous
  Country: DE (occurrence: DE)
  Receive Date: 20130906
  Receipt Date: 20130906
  Transmission Date: 20140515
  Serious: Yes (Death, Other)
  Sender: FDA-Public Use
  Company Number: DE-TEVA-429449GER

PATIENT
  Sex: 0

DRUGS (1)
  1. COTRIMOXAZOLE [Suspect]
     Route: 042
     Dates: start: 201108

REACTIONS (2)
  - Incorrect route of drug administration [Unknown]
  - Death [Fatal]
